FAERS Safety Report 8375535-X (Version None)
Quarter: 2012Q1

REPORT INFORMATION
  Report Type: 
  Country: None (occurrence: None)
  Receive Date: 20120323
  Receipt Date: 20111125
  Transmission Date: 20120608
  Serious: Yes (Other)
  Sender: FDA-Public Use
  Company Number: 163-21880-11113645

PATIENT
  Age: 61 Year
  Sex: Female

DRUGS (7)
  1. CYCLOBENZAPRINE HCL (CYCLOBENZAPRINE HYDROCHLORIDE) [Concomitant]
  2. DEXAMETHASONE [Concomitant]
  3. METOPROLOL SUCCINATE [Concomitant]
  4. MIRTAZAPINE [Concomitant]
  5. REVLIMID [Suspect]
     Indication: MULTIPLE MYELOMA
     Dosage: 5 MG, 1 IN 1 D, PO
     Route: 048
     Dates: start: 20110513
  6. NEPHROVITE (NEPHROVITE) [Concomitant]
  7. PRAVASTATIN SODIUM [Concomitant]

REACTIONS (1)
  - THROMBOSIS IN DEVICE [None]
